FAERS Safety Report 7108554-1 (Version None)
Quarter: 2010Q4

REPORT INFORMATION
  Report Type: 
  Country: None (occurrence: None)
  Receive Date: 20101115
  Receipt Date: 20101115
  Transmission Date: 20110411
  Serious: Yes (Life-Threatening, Hospitalization)
  Sender: FDA-Public Use
  Company Number: None

PATIENT
  Sex: Male
  Weight: 95.2554 kg

DRUGS (2)
  1. LOSARTAN POTASSIUM [Suspect]
     Indication: HYPERTENSION
     Dosage: 100MG ONCE  DAY
     Dates: start: 20100725, end: 20100907
  2. COZAAR [Suspect]

REACTIONS (3)
  - ASTHENIA [None]
  - HYPERTENSION [None]
  - PRODUCT SUBSTITUTION ISSUE [None]
